FAERS Safety Report 13632891 (Version 1)
Quarter: 2017Q2

REPORT INFORMATION
  Report Type: Spontaneous
  Country: US (occurrence: US)
  Receive Date: 20170531
  Receipt Date: 20170531
  Transmission Date: 20170830
  Serious: No
  Sender: FDA-Public Use
  Company Number: US-ASTELLAS-1488147

PATIENT
  Sex: Male

DRUGS (5)
  1. MINOCYCLINE HCL [Concomitant]
     Active Substance: MINOCYCLINE HYDROCHLORIDE
  2. XARELTO [Concomitant]
     Active Substance: RIVAROXABAN
  3. TARCEVA [Suspect]
     Active Substance: ERLOTINIB HYDROCHLORIDE
     Indication: LUNG NEOPLASM MALIGNANT
     Route: 048
     Dates: start: 20140808
  4. FOLIC ACID. [Concomitant]
     Active Substance: FOLIC ACID
  5. CELECOXIB. [Concomitant]
     Active Substance: CELECOXIB

REACTIONS (1)
  - Drug ineffective [Unknown]
